FAERS Safety Report 4363811-7 (Version None)
Quarter: 2004Q2

REPORT INFORMATION
  Report Type: 
  Country: None (occurrence: None)
  Receive Date: 20040521
  Receipt Date: 20040503
  Transmission Date: 20050107
  Serious: Yes (Hospitalization)
  Sender: FDA-Public Use
  Company Number: NL-JNJFOC-20040501550

PATIENT
  Age: 3 Month
  Sex: Male

DRUGS (1)
  1. MICONAZOLE [Suspect]
     Indication: ORAL CANDIDIASIS
     Dosage: 1 G, 1 IN 1 DAY, ORAL
     Route: 048

REACTIONS (3)
  - ASPHYXIA [None]
  - CHOKING [None]
  - OBSTRUCTIVE AIRWAYS DISORDER [None]
